FAERS Safety Report 25368942 (Version 1)
Quarter: 2025Q2

REPORT INFORMATION
  Report Type: Spontaneous
  Country: KR (occurrence: KR)
  Receive Date: 20250528
  Receipt Date: 20250528
  Transmission Date: 20250716
  Serious: Yes (Hospitalization)
  Sender: SK LIFE SCIENCE
  Company Number: KR-SK LIFE SCIENCE, INC.-SKPVG-2025-000998

PATIENT

DRUGS (1)
  1. XCOPRI [Suspect]
     Active Substance: CENOBAMATE
     Indication: Product used for unknown indication
     Route: 065

REACTIONS (1)
  - Brain operation [Not Recovered/Not Resolved]

NARRATIVE: CASE EVENT DATE: 20250511
